FAERS Safety Report 13494001 (Version 1)
Quarter: 2017Q2

REPORT INFORMATION
  Report Type: Spontaneous
  Country: US (occurrence: US)
  Receive Date: 20170427
  Receipt Date: 20170427
  Transmission Date: 20170830
  Serious: No
  Sender: FDA-Public Use
  Company Number: US-ALKERMES INC.-ALK-2016-000428

PATIENT
  Age: 21 Year
  Sex: Male
  Weight: 74.38 kg

DRUGS (1)
  1. VIVITROL [Suspect]
     Active Substance: NALTREXONE
     Indication: DRUG USE DISORDER
     Dosage: 380 MG, QMO
     Route: 030
     Dates: start: 20160212

REACTIONS (8)
  - Injection site erythema [Unknown]
  - Malaise [Recovered/Resolved]
  - Insomnia [Unknown]
  - Injection site pain [Recovered/Resolved]
  - Impatience [Recovered/Resolved]
  - Injection site reaction [Recovered/Resolved]
  - Anxiety [Recovered/Resolved]
  - Restlessness [Recovered/Resolved]

NARRATIVE: CASE EVENT DATE: 20160212
